FAERS Safety Report 24870466 (Version 3)
Quarter: 2025Q1

REPORT INFORMATION
  Report Type: Spontaneous
  Country: DE (occurrence: DE)
  Receive Date: 20250121
  Receipt Date: 20250217
  Transmission Date: 20250409
  Serious: Yes (Hospitalization)
  Sender: BOEHRINGER INGELHEIM
  Company Number: DE-Komodo Health-a23aa000005MjgLAAS

PATIENT
  Age: 81 Year
  Sex: Female

DRUGS (1)
  1. OLODATEROL HYDROCHLORIDE\TIOTROPIUM BROMIDE MONOHYDRATE [Suspect]
     Active Substance: OLODATEROL HYDROCHLORIDE\TIOTROPIUM BROMIDE MONOHYDRATE
     Indication: Chronic obstructive pulmonary disease
     Dosage: 2 PUFFS IN THE MORNING

REACTIONS (5)
  - Asthenia [Not Recovered/Not Resolved]
  - Myocardial infarction [Unknown]
  - Respiratory distress [Unknown]
  - Product prescribing error [Unknown]
  - Coronavirus infection [Unknown]
